FAERS Safety Report 7834046-8 (Version None)
Quarter: 2011Q4

REPORT INFORMATION
  Report Type: 
  Country: None (occurrence: None)
  Receive Date: 20111024
  Receipt Date: 20111024
  Transmission Date: 20120403
  Serious: No
  Sender: FDA-Public Use
  Company Number: None

PATIENT
  Age: 54 Year
  Sex: Male

DRUGS (1)
  1. RITUXAN [Suspect]
     Indication: WEGENER'S GRANULOMATOSIS

REACTIONS (2)
  - HEADACHE [None]
  - NAUSEA [None]
